FAERS Safety Report 9174408 (Version 1)
Quarter: 2013Q1

REPORT INFORMATION
  Report Type: Spontaneous
  Country: US (occurrence: US)
  Receive Date: 20130320
  Receipt Date: 20130320
  Transmission Date: 20140127
  Serious: No
  Sender: FDA-Public Use
  Company Number: PHEH2013US006363

PATIENT
  Sex: Male

DRUGS (4)
  1. TASIGNA [Suspect]
     Dosage: 150 MG, BID
  2. DIOVAN [Concomitant]
     Dosage: 320 MG, UNK
  3. COREG [Concomitant]
     Dosage: UNK UKN, UNK
  4. SULFASALAZINE [Concomitant]

REACTIONS (1)
  - Limb discomfort [Unknown]
